FAERS Safety Report 7969675-4 (Version None)
Quarter: 2011Q4

REPORT INFORMATION
  Report Type: 
  Country: None (occurrence: None)
  Receive Date: 20111208
  Receipt Date: 20111130
  Transmission Date: 20120403
  Serious: Yes (Hospitalization)
  Sender: FDA-Public Use
  Company Number: JPI-P-018517

PATIENT
  Age: 45 Year
  Sex: Male

DRUGS (4)
  1. MODAFINIL [Concomitant]
  2. OMEPRAZOLE [Concomitant]
  3. SERTRALINE HYDROCHLORIDE [Concomitant]
  4. XYREM (500 MILLIGRAM/MILLILITERS, SOLUTION) (SODIUM OXYBATE) [Suspect]
     Indication: CATAPLEXY
     Dosage: 5 GM (2.5  GM,2 IN 1 D,ORAL
     Dates: start: 20111121

REACTIONS (2)
  - CATAPLEXY [None]
  - CONVULSION [None]
